FAERS Safety Report 22389619 (Version 1)
Quarter: 2023Q2

REPORT INFORMATION
  Report Type: Spontaneous
  Country: US (occurrence: None)
  Receive Date: 20230530
  Receipt Date: 20230530
  Transmission Date: 20230722
  Serious: Yes (Hospitalization, Disabling)
  Sender: FDA-Public Use
  Company Number: None

PATIENT
  Age: 73 Year
  Sex: Male
  Weight: 76.95 kg

DRUGS (13)
  1. PROLIA [Suspect]
     Active Substance: DENOSUMAB
     Indication: Bone density decreased
     Dosage: OTHER FREQUENCY : EVERY SIX MONTHS;?
     Route: 058
  2. LIALDA [Concomitant]
     Active Substance: MESALAMINE
  3. SYNTHROID [Concomitant]
  4. LIPITOR [Concomitant]
     Active Substance: ATORVASTATIN CALCIUM
  5. OZEMPIC [Concomitant]
     Active Substance: SEMAGLUTIDE
  6. LOVAZA [Concomitant]
     Active Substance: OMEGA-3-ACID ETHYL ESTERS
  7. HUMALOG [Concomitant]
     Active Substance: INSULIN LISPRO
  8. treshiba [Concomitant]
  9. COREG [Concomitant]
     Active Substance: CARVEDILOL
  10. FINASTERIDE [Concomitant]
     Active Substance: FINASTERIDE
  11. nifediine [Concomitant]
  12. ZYLOPRIN [Concomitant]
  13. SYMBICORT [Concomitant]
     Active Substance: BUDESONIDE\FORMOTEROL FUMARATE DIHYDRATE

REACTIONS (6)
  - Insomnia [None]
  - Feeling jittery [None]
  - Diarrhoea [None]
  - Fatigue [None]
  - Blood calcium decreased [None]
  - Illness [None]

NARRATIVE: CASE EVENT DATE: 20230504
